FAERS Safety Report 16326157 (Version 1)
Quarter: 2019Q2

REPORT INFORMATION
  Report Type: Spontaneous
  Country: IT (occurrence: IT)
  Receive Date: 20190517
  Receipt Date: 20190517
  Transmission Date: 20190711
  Serious: Yes (Other)
  Sender: FDA-Public Use
  Company Number: PHHY2019IT111185

PATIENT
  Age: 49 Year
  Sex: Female

DRUGS (1)
  1. RIZATRIPTAN SANDOZ [Suspect]
     Active Substance: RIZATRIPTAN BENZOATE
     Indication: PRODUCT USED FOR UNKNOWN INDICATION
     Dosage: UNK
     Route: 065

REACTIONS (3)
  - Migraine [Unknown]
  - Vomiting [Unknown]
  - Palpitations [Unknown]

NARRATIVE: CASE EVENT DATE: 20190429
